FAERS Safety Report 17856387 (Version 6)
Quarter: 2020Q3

REPORT INFORMATION
  Report Type: Spontaneous
  Country: DE (occurrence: DE)
  Receive Date: 20200603
  Receipt Date: 20200717
  Transmission Date: 20201103
  Serious: Yes (Life-Threatening, Hospitalization, Other)
  Sender: FDA-Public Use
  Company Number: NVSC2020DE151448

PATIENT
  Age: 69 Year
  Sex: Male
  Weight: 77 kg

DRUGS (16)
  1. TORASEMIDE [Interacting]
     Active Substance: TORSEMIDE
     Indication: RENAL DISORDER
     Dosage: 10 MG, QD (IN  MORNING)
     Route: 065
     Dates: start: 201808
  2. MILGAMMA PROTEKT [Interacting]
     Active Substance: BENFOTIAMINE
     Indication: CARDIOVASCULAR DISORDER
     Dosage: 300 MG, QD
     Route: 065
     Dates: start: 201808
  3. ELIQUIS [Interacting]
     Active Substance: APIXABAN
     Indication: CEREBROVASCULAR ACCIDENT PROPHYLAXIS
  4. ELIQUIS [Interacting]
     Active Substance: APIXABAN
     Indication: ATRIAL FIBRILLATION
     Dosage: 10 MG, QD (5 MG, BID)
     Route: 065
     Dates: start: 201808
  5. SPIRONOLACTONE. [Interacting]
     Active Substance: SPIRONOLACTONE
     Indication: CARDIAC DISORDER
     Dosage: 50 MG, QD (IN THE MORNING)
     Route: 065
     Dates: start: 201808
  6. INSULIN GLARGINE [Interacting]
     Active Substance: INSULIN GLARGINE
     Indication: DIABETES MELLITUS
     Dosage: 15 IU, QD (IN THE EVENING)
     Route: 065
     Dates: start: 201808
  7. ELIQUIS [Interacting]
     Active Substance: APIXABAN
     Indication: CEREBROVASCULAR ACCIDENT PROPHYLAXIS
  8. ABASAGLAR [Interacting]
     Active Substance: INSULIN GLARGINE
     Indication: DIABETES MELLITUS
     Dosage: 15 IU, QD
     Route: 065
     Dates: start: 201808
  9. AMLODIPINE BESILATE [Interacting]
     Active Substance: AMLODIPINE BESYLATE
     Indication: HYPERTENSION
     Dosage: 10 MG, QD (5 MG, BID)
     Route: 065
     Dates: start: 201808
  10. CARVEDILOL. [Interacting]
     Active Substance: CARVEDILOL
     Indication: CARDIAC DISORDER
     Dosage: 25 MG
     Route: 065
     Dates: start: 201808
  11. AVASTIN [Interacting]
     Active Substance: BEVACIZUMAB
     Indication: DIABETIC RETINAL OEDEMA
     Dosage: UNK (INJECTED IN THE RIGHT EYE 13:30)
     Route: 031
     Dates: start: 20200115
  12. SIMVASTATIN. [Suspect]
     Active Substance: SIMVASTATIN
     Indication: BLOOD CHOLESTEROL
     Dosage: 40 MG, QD
     Route: 065
     Dates: start: 201808
  13. ALLOPURINOL. [Interacting]
     Active Substance: ALLOPURINOL
     Indication: GOUT
     Dosage: 100 MG, QD
     Route: 065
     Dates: start: 201808
  14. RAMIPRIL. [Interacting]
     Active Substance: RAMIPRIL
     Indication: HYPERTENSION
     Dosage: 10 MG, QD (5 MG, BID)
     Route: 065
     Dates: start: 201808
  15. PROCORALAN [Interacting]
     Active Substance: IVABRADINE
     Indication: CARDIAC DISORDER
     Dosage: 7.5 MG, QD
     Route: 065
     Dates: start: 201808
  16. JANUMET [Interacting]
     Active Substance: METFORMIN HYDROCHLORIDE\SITAGLIPTIN PHOSPHATE
     Indication: DIABETES MELLITUS
     Dosage: 1 DF, QD (1 DF, Q12H)
     Route: 065
     Dates: start: 201808

REACTIONS (5)
  - Eye movement disorder [Recovered/Resolved]
  - Drug interaction [Unknown]
  - Movement disorder [Recovered/Resolved]
  - Seizure [Recovered/Resolved]
  - Off label use [Unknown]

NARRATIVE: CASE EVENT DATE: 20200115
